FAERS Safety Report 23678326 (Version 2)
Quarter: 2024Q2

REPORT INFORMATION
  Report Type: Other
  Country: US (occurrence: None)
  Receive Date: 20240327
  Receipt Date: 20240430
  Transmission Date: 20240716
  Serious: Yes (Other)
  Sender: FDA-Public Use
  Company Number: US-ROCHE-3530811

PATIENT
  Age: 49 Year
  Sex: Male

DRUGS (1)
  1. HEMLIBRA [Suspect]
     Active Substance: EMICIZUMAB-KXWH
     Indication: Factor VIII deficiency
     Dosage: INJECT 138MG (0.92ML) SUBCUTANEOUSLY EVERY 7 DAY(S)
     Route: 058

REACTIONS (1)
  - Blindness [Unknown]
